FAERS Safety Report 8778003 (Version 1)
Quarter: 2012Q4

REPORT INFORMATION
  Report Type: 
  Country: US (occurrence: US)
  Receive Date: 20120912
  Receipt Date: 20120912
  Transmission Date: 20130627
  Serious: No
  Sender: FDA-Public Use
  Company Number: US-ASTRAZENECA-2012SE69885

PATIENT
  Age: 38 Year
  Sex: Male
  Weight: 81.6 kg

DRUGS (2)
  1. SEROQUEL [Suspect]
     Indication: SLEEP DISORDER
     Dosage: AT NIGHT
     Route: 048
  2. CLONAZEPAM [Concomitant]
     Indication: PARANOIA

REACTIONS (3)
  - Weight decreased [Unknown]
  - Sedation [Unknown]
  - Off label use [Unknown]
